FAERS Safety Report 7638846-9 (Version None)
Quarter: 2011Q3

REPORT INFORMATION
  Report Type: 
  Country: None (occurrence: None)
  Receive Date: 20110726
  Receipt Date: 20110726
  Transmission Date: 20111222
  Serious: Yes (Hospitalization)
  Sender: FDA-Public Use
  Company Number: None

PATIENT
  Sex: Female
  Weight: 83.1 kg

DRUGS (3)
  1. TAXOL [Suspect]
     Dosage: 225 MG
  2. CISPLATIN [Suspect]
     Dosage: 90 MG
  3. DOXORUBICIN HYDROCHLORIDE [Suspect]
     Dosage: 54 MG

REACTIONS (24)
  - DIARRHOEA [None]
  - NEUTROPHIL COUNT DECREASED [None]
  - PLATELET COUNT DECREASED [None]
  - BLOOD CALCIUM DECREASED [None]
  - PROTHROMBIN TIME PROLONGED [None]
  - INTERNATIONAL NORMALISED RATIO INCREASED [None]
  - BLOOD URIC ACID DECREASED [None]
  - DECREASED APPETITE [None]
  - BLOOD BILIRUBIN INCREASED [None]
  - HAEMOGLOBIN DECREASED [None]
  - BLOOD MAGNESIUM DECREASED [None]
  - PROTEIN TOTAL DECREASED [None]
  - BLOOD ALBUMIN DECREASED [None]
  - FATIGUE [None]
  - HAEMATOCRIT DECREASED [None]
  - HYPOTENSION [None]
  - HEART RATE INCREASED [None]
  - WHITE BLOOD CELL COUNT DECREASED [None]
  - BLOOD PHOSPHORUS DECREASED [None]
  - BLOOD AMYLASE DECREASED [None]
  - FLATULENCE [None]
  - BLOOD SODIUM DECREASED [None]
  - BLOOD POTASSIUM DECREASED [None]
  - ASPARTATE AMINOTRANSFERASE INCREASED [None]
